FAERS Safety Report 20611691 (Version 1)
Quarter: 2022Q1

REPORT INFORMATION
  Report Type: Spontaneous
  Country: PT (occurrence: PT)
  Receive Date: 20220318
  Receipt Date: 20220318
  Transmission Date: 20220423
  Serious: Yes (Death, Hospitalization, Other)
  Sender: FDA-Public Use
  Company Number: PT-INTERCEPT-PM2022000557

PATIENT
  Age: 67 Year
  Sex: Female

DRUGS (2)
  1. OCALIVA [Suspect]
     Active Substance: OBETICHOLIC ACID
     Indication: Primary biliary cholangitis
     Dosage: 5 MILLIGRAM, QW
     Route: 048
  2. OCALIVA [Suspect]
     Active Substance: OBETICHOLIC ACID
     Dosage: 5 MILLIGRAM, 2X/WK
     Route: 048
     Dates: end: 202202

REACTIONS (4)
  - Upper gastrointestinal haemorrhage [Fatal]
  - Femoral neck fracture [Unknown]
  - Hepatic cirrhosis [Unknown]
  - Child-Pugh-Turcotte score increased [Unknown]

NARRATIVE: CASE EVENT DATE: 20220201
